FAERS Safety Report 16538917 (Version 1)
Quarter: 2019Q3

REPORT INFORMATION
  Report Type: Spontaneous
  Country: US (occurrence: US)
  Receive Date: 20190524
  Receipt Date: 20190524
  Transmission Date: 20191004
  Serious: No
  Sender: FDA-Public Use
  Company Number: None

PATIENT
  Age: 63 Year
  Sex: Female

DRUGS (4)
  1. IBRANCE [Suspect]
     Active Substance: PALBOCICLIB
     Route: 048
     Dates: start: 20190416
  2. FASLODEX [Concomitant]
     Active Substance: FULVESTRANT
  3. CHANTIX [Concomitant]
     Active Substance: VARENICLINE TARTRATE
  4. METFORMIN [Suspect]
     Active Substance: METFORMIN HYDROCHLORIDE

REACTIONS (4)
  - Fatigue [None]
  - Nausea [None]
  - Taste disorder [None]
  - Dry mouth [None]

NARRATIVE: CASE EVENT DATE: 20190522
